FAERS Safety Report 25331842 (Version 1)
Quarter: 2025Q2

REPORT INFORMATION
  Report Type: Spontaneous
  Country: US (occurrence: US)
  Receive Date: 20250519
  Receipt Date: 20250519
  Transmission Date: 20250716
  Serious: No
  Sender: TRAVERE THERAPEUTICS
  Company Number: US-TRAVERE-2025TVT00713

PATIENT
  Age: 66 Year
  Sex: Male

DRUGS (1)
  1. FILSPARI [Suspect]
     Active Substance: SPARSENTAN
     Indication: IgA nephropathy
     Route: 048

REACTIONS (1)
  - Blood glucose abnormal [Unknown]

NARRATIVE: CASE EVENT DATE: 20250501
